FAERS Safety Report 19678977 (Version 1)
Quarter: 2021Q3

REPORT INFORMATION
  Report Type: Spontaneous
  Country: TR (occurrence: TR)
  Receive Date: 20210810
  Receipt Date: 20210810
  Transmission Date: 20211014
  Serious: Yes (Other)
  Sender: FDA-Public Use
  Company Number: NVSC2021TR170625

PATIENT
  Sex: Female

DRUGS (2)
  1. VALAMOR [Suspect]
     Active Substance: RIBOCICLIB
     Dosage: 600 MG
     Route: 065
  2. VALAMOR [Suspect]
     Active Substance: RIBOCICLIB
     Indication: MENOPAUSAL SYMPTOMS
     Dosage: 600 MG
     Route: 065

REACTIONS (1)
  - Diplopia [Recovered/Resolved]
